FAERS Safety Report 5473854-8 (Version None)
Quarter: 2007Q4

REPORT INFORMATION
  Report Type: 
  Country: None (occurrence: None)
  Receive Date: 20071001
  Receipt Date: 20070919
  Transmission Date: 20080405
  Serious: Yes (Other)
  Sender: FDA-Public Use
  Company Number: US-PFIZER INC-2007078899

PATIENT
  Age: 31 Year
  Sex: Female
  Weight: 90.7 kg

DRUGS (19)
  1. CHANTIX [Suspect]
     Indication: SMOKING CESSATION THERAPY
     Route: 048
     Dates: start: 20070901, end: 20070919
  2. NASONEX [Concomitant]
  3. ADVAIR DISKUS 100/50 [Concomitant]
  4. OMEPRAZOLE [Concomitant]
  5. FEXOFENADINE [Concomitant]
  6. NIMED [Concomitant]
  7. MONTELUKAST SODIUM [Concomitant]
  8. ARICEPT [Concomitant]
  9. TRICOR [Concomitant]
  10. METFORMIN HCL [Concomitant]
  11. SYNTHROID [Concomitant]
  12. PROVIGIL [Concomitant]
  13. WELLBUTRIN [Concomitant]
  14. GEODON [Concomitant]
  15. OXYIR [Concomitant]
  16. LYRICA [Concomitant]
  17. ALTACE [Concomitant]
  18. FENTANYL [Concomitant]
  19. LIDODERM [Concomitant]

REACTIONS (2)
  - RASH GENERALISED [None]
  - VASCULAR RUPTURE [None]
